FAERS Safety Report 5992939-0 (Version None)
Quarter: 2008Q4

REPORT INFORMATION
  Report Type: 
  Country: None (occurrence: None)
  Receive Date: 20081212
  Receipt Date: 20081205
  Transmission Date: 20090506
  Serious: Yes (Hospitalization, Other)
  Sender: FDA-Public Use
  Company Number: DE-JNJFOC-20081100148

PATIENT
  Sex: Male
  Weight: 48 kg

DRUGS (2)
  1. RISPERDAL [Suspect]
     Indication: SCHIZOPHRENIA, PARANOID TYPE
     Dosage: 3.5 MG - 4.0 MG
     Route: 048
  2. DIPIPERONE [Concomitant]
     Route: 048

REACTIONS (4)
  - ANTIPSYCHOTIC DRUG LEVEL BELOW THERAPEUTIC [None]
  - CATATONIA [None]
  - DRUG INEFFECTIVE [None]
  - SCHIZOPHRENIA [None]
